FAERS Safety Report 8018494-1 (Version None)
Quarter: 2012Q1

REPORT INFORMATION
  Report Type: 
  Country: None (occurrence: None)
  Receive Date: 20120103
  Receipt Date: 20111223
  Transmission Date: 20120608
  Serious: Yes (Hospitalization)
  Sender: FDA-Public Use
  Company Number: US-BAYER-2011-034708

PATIENT
  Age: 41 Year
  Sex: Female
  Weight: 123 kg

DRUGS (16)
  1. YASMIN [Suspect]
     Indication: PREMENSTRUAL SYNDROME
  2. XOPENEX [Concomitant]
     Route: 045
  3. AUGMENTIN '125' [Concomitant]
     Dosage: 1 TABLET TWICE DAILY
     Route: 048
  4. XANAX [Concomitant]
     Dosage: 5 MG, EVERY 12 HOURS
     Route: 048
  5. PREDNISONE TAB [Concomitant]
  6. LEXAPRO [Concomitant]
     Indication: DEPRESSION
     Dosage: 10 MG, DAILY
     Route: 048
     Dates: start: 20060101, end: 20100101
  7. DROSPIRENONE AND ETHINYL ESTRADIOL [Suspect]
     Indication: PREMENSTRUAL SYNDROME
     Dosage: UNK
     Route: 048
     Dates: start: 20081101, end: 20091101
  8. SYMBICORT [Concomitant]
     Dosage: 160/4.5MCG SPRAY, 2 PUFFS
     Route: 045
  9. TUSS-IONEX [HYDROCODONE,PHENYLTOLOXAMINE] [Concomitant]
     Indication: HYPERSENSITIVITY
     Dosage: UNK
     Dates: start: 20020101
  10. FLONASE [Concomitant]
     Route: 045
  11. YASMIN [Suspect]
     Indication: CONTRACEPTION
     Dosage: UNK
     Route: 048
     Dates: start: 20020701, end: 20080701
  12. SYNTHROID [Concomitant]
     Indication: HYPOTHYROIDISM
     Dosage: 100 MCG/24HR, UNK
     Dates: start: 20090401
  13. YAZ [Suspect]
     Indication: CONTRACEPTION
     Dosage: UNK
     Route: 048
     Dates: start: 20080901, end: 20081001
  14. YAZ [Suspect]
     Indication: PREMENSTRUAL SYNDROME
  15. LEXAPRO [Concomitant]
     Indication: ANXIETY
  16. DROSPIRENONE AND ETHINYL ESTRADIOL [Suspect]
     Indication: CONTRACEPTION
     Dosage: UNK
     Route: 048
     Dates: start: 20080701, end: 20080901

REACTIONS (6)
  - ANHEDONIA [None]
  - DEEP VEIN THROMBOSIS [None]
  - EMOTIONAL DISTRESS [None]
  - PAIN [None]
  - PULMONARY EMBOLISM [None]
  - ANXIETY [None]
